FAERS Safety Report 4955386-6 (Version None)
Quarter: 2006Q1

REPORT INFORMATION
  Report Type: 
  Country: None (occurrence: None)
  Receive Date: 20060322
  Receipt Date: 20060309
  Transmission Date: 20060701
  Serious: Yes (Other)
  Sender: FDA-Public Use
  Company Number: HQWYE285610MAR06

PATIENT
  Age: 38 Year
  Sex: Female

DRUGS (1)
  1. EFFEXOR [Suspect]
     Dosage: ^DOSES KEEP GETTING STRONGER^

REACTIONS (9)
  - AGGRESSION [None]
  - ANHEDONIA [None]
  - DRUG DEPENDENCE [None]
  - DRUG WITHDRAWAL SYNDROME [None]
  - FATIGUE [None]
  - FEELING ABNORMAL [None]
  - IRRITABILITY [None]
  - PHARMACEUTICAL PRODUCT COMPLAINT [None]
  - UNEVALUABLE EVENT [None]
